FAERS Safety Report 16894929 (Version 3)
Quarter: 2019Q4

REPORT INFORMATION
  Report Type: Spontaneous
  Country: GB (occurrence: GB)
  Receive Date: 20191008
  Receipt Date: 20191021
  Transmission Date: 20200122
  Serious: Yes (Hospitalization)
  Sender: FDA-Public Use
  Company Number: GB-009507513-1910GBR005276

PATIENT
  Age: 69 Year
  Sex: Male

DRUGS (5)
  1. NOXAFIL [Suspect]
     Active Substance: POSACONAZOLE
     Dosage: 5 MILLILITER, TID
     Route: 048
     Dates: start: 20191002
  2. ACYCLOVIR. [Concomitant]
     Active Substance: ACYCLOVIR
  3. FEXOFENADINE HYDROCHLORIDE. [Concomitant]
     Active Substance: FEXOFENADINE HYDROCHLORIDE
  4. NOXAFIL [Suspect]
     Active Substance: POSACONAZOLE
     Indication: ACUTE MYELOID LEUKAEMIA
     Dosage: 25 MILLILITER, 3 TIMES A DAY
     Route: 048
     Dates: start: 20190907, end: 20190918
  5. OMEPRAZOLE. [Concomitant]
     Active Substance: OMEPRAZOLE

REACTIONS (5)
  - Incorrect dose administered [Unknown]
  - Product prescribing issue [Unknown]
  - Product use in unapproved indication [Unknown]
  - Dyspnoea [Unknown]
  - Malaise [Unknown]

NARRATIVE: CASE EVENT DATE: 201909
